FAERS Safety Report 12352532 (Version 1)
Quarter: 2016Q2

REPORT INFORMATION
  Report Type: Report from Study
  Country: US (occurrence: US)
  Receive Date: 20160510
  Receipt Date: 20160510
  Transmission Date: 20160815
  Serious: Yes (Other)
  Sender: FDA-Public Use
  Company Number: US-THERATECHNOLOGIES, INC.-TH-2016-00049

PATIENT
  Age: 44 Year
  Sex: Male
  Weight: 102.15 kg

DRUGS (3)
  1. EGRIFTA [Suspect]
     Active Substance: TESAMORELIN
     Indication: LIPOHYPERTROPHY
     Dosage: 2 MILLIGRAM
     Route: 058
     Dates: start: 20150708, end: 20160425
  2. TRICOR [Concomitant]
     Active Substance: FENOFIBRATE
     Indication: HIV INFECTION
     Dosage: UNKNOWN
  3. PAIN MEDICATION [Concomitant]
     Active Substance: UNSPECIFIED INGREDIENT
     Indication: PAIN
     Dosage: UNKNOWN

REACTIONS (9)
  - Anal incontinence [Recovered/Resolved]
  - Hypokinesia [Recovered/Resolved]
  - Hyperhidrosis [Recovered/Resolved]
  - Feeling hot [Recovered/Resolved]
  - Aphasia [Recovered/Resolved]
  - Dyspnoea [Recovered/Resolved]
  - Diarrhoea [Recovered/Resolved]
  - Headache [Recovered/Resolved]
  - Nausea [Recovered/Resolved]

NARRATIVE: CASE EVENT DATE: 20160425
